FAERS Safety Report 16885212 (Version 1)
Quarter: 2019Q4

REPORT INFORMATION
  Report Type: Report from Study
  Country: DE (occurrence: DE)
  Receive Date: 20191004
  Receipt Date: 20191004
  Transmission Date: 20200122
  Serious: Yes (Other)
  Sender: FDA-Public Use
  Company Number: DE-MYLANLABS-2019M1091776

PATIENT
  Age: 10 Year
  Sex: Female

DRUGS (3)
  1. METHOTREXATE. [Suspect]
     Active Substance: METHOTREXATE
     Indication: JUVENILE IDIOPATHIC ARTHRITIS
     Dosage: 12.5 MILLIGRAM, QW
     Route: 065
     Dates: start: 20180414
  2. FOLIC ACID. [Suspect]
     Active Substance: FOLIC ACID
     Indication: PROPHYLAXIS
     Dosage: 0.7 MILLIGRAM, QD
     Route: 065
     Dates: start: 20180414
  3. TOCILIZUMAB. [Suspect]
     Active Substance: TOCILIZUMAB
     Indication: JUVENILE IDIOPATHIC ARTHRITIS
     Dosage: 280 MILLIGRAM, BIWEEKLY
     Route: 065
     Dates: start: 20180823

REACTIONS (1)
  - Pyoderma gangrenosum [Recovering/Resolving]

NARRATIVE: CASE EVENT DATE: 20181015
